FAERS Safety Report 9812316 (Version 1)
Quarter: 2014Q1

REPORT INFORMATION
  Report Type: Spontaneous
  Country: US (occurrence: US)
  Receive Date: 20140113
  Receipt Date: 20140113
  Transmission Date: 20141002
  Serious: Yes (Death)
  Sender: FDA-Public Use
  Company Number: US-ASTRAZENECA-2014SE01827

PATIENT
  Age: 78 Year
  Sex: Female

DRUGS (4)
  1. LISINOPRIL [Suspect]
     Route: 048
  2. METOPROLOL [Suspect]
     Route: 048
  3. CARDIAC GLYCOSIDE [Suspect]
  4. VASOPRESSOR [Suspect]

REACTIONS (1)
  - Toxicity to various agents [Fatal]
